FAERS Safety Report 7512699-1 (Version None)
Quarter: 2011Q2

REPORT INFORMATION
  Report Type: 
  Country: None (occurrence: None)
  Receive Date: 20110520
  Receipt Date: 20110512
  Transmission Date: 20111010
  Serious: Yes (Hospitalization, Other)
  Sender: FDA-Public Use
  Company Number: JPI-P-015070

PATIENT
  Sex: Female

DRUGS (3)
  1. XYREM [Suspect]
     Indication: CATAPLEXY
     Dosage: ORAL
     Route: 048
  2. ARMODAFINIL [Concomitant]
  3. PAROXETINE HCL [Concomitant]

REACTIONS (2)
  - CONVULSION [None]
  - MENTAL DISORDER [None]
